FAERS Safety Report 9382418 (Version 1)
Quarter: 2013Q3

REPORT INFORMATION
  Report Type: Spontaneous
  Country: US (occurrence: US)
  Receive Date: 20130703
  Receipt Date: 20130703
  Transmission Date: 20140515
  Serious: No
  Sender: FDA-Public Use
  Company Number: US-UPSHER-SMITH LABORATORIES, INC.-12002602

PATIENT
  Age: 50 Year
  Sex: Female

DRUGS (3)
  1. DIVIGEL [Suspect]
     Indication: MENOPAUSE
     Dosage: 0.25 MG, ONCE
     Route: 061
     Dates: start: 201210, end: 201210
  2. MULTIVITAMIN                       /01229101/ [Concomitant]
     Dosage: UNK
  3. UNSPECIFIED PROBIOTIC [Concomitant]
     Dosage: UNK

REACTIONS (4)
  - Hypersensitivity [Recovered/Resolved]
  - Painful respiration [Recovered/Resolved]
  - Pyrexia [Recovered/Resolved]
  - Paraesthesia [Recovered/Resolved]
